FAERS Safety Report 20230248 (Version 1)
Quarter: 2021Q4

REPORT INFORMATION
  Report Type: Report from Study
  Country: BR (occurrence: BR)
  Receive Date: 20211226
  Receipt Date: 20211226
  Transmission Date: 20220304
  Serious: Yes (Other)
  Sender: FDA-Public Use
  Company Number: BR-NOVARTISPH-NVSC2021BR294507

PATIENT
  Sex: Female

DRUGS (1)
  1. DIOVAN [Suspect]
     Active Substance: VALSARTAN
     Indication: Product used for unknown indication
     Dosage: 160 MG
     Route: 065

REACTIONS (13)
  - Infarction [Unknown]
  - Cardiac fibrillation [Unknown]
  - Deafness [Unknown]
  - Myocardial infarction [Unknown]
  - Angina unstable [Unknown]
  - Malaise [Unknown]
  - Aphasia [Unknown]
  - Blood pressure increased [Unknown]
  - Palpitations [Unknown]
  - Dysstasia [Unknown]
  - Aphonia [Unknown]
  - Hypertension [Unknown]
  - Fatigue [Unknown]
